FAERS Safety Report 4572041-5 (Version None)
Quarter: 2005Q1

REPORT INFORMATION
  Report Type: 
  Country: None (occurrence: None)
  Receive Date: 20050202
  Receipt Date: 20050202
  Transmission Date: 20050727
  Serious: Yes (Life-Threatening)
  Sender: FDA-Public Use
  Company Number: None

PATIENT
  Age: 49 Year
  Sex: Female

DRUGS (1)
  1. TEQUIN [Suspect]
     Dosage: 400 MG PO DAILY
     Route: 048
     Dates: start: 20040628, end: 20040701

REACTIONS (1)
  - URTICARIA [None]
